FAERS Safety Report 7223221-1 (Version None)
Quarter: 2011Q1

REPORT INFORMATION
  Report Type: 
  Country: None (occurrence: None)
  Receive Date: 20110112
  Receipt Date: 20100304
  Transmission Date: 20110831
  Serious: No
  Sender: FDA-Public Use
  Company Number: US-ALLERGAN-1002944US

PATIENT
  Sex: Female

DRUGS (6)
  1. NASONEX [Concomitant]
  2. MULTI-VITAMIN [Concomitant]
  3. VITAMIN B6 [Concomitant]
  4. ASCORBIC ACID [Concomitant]
  5. VITAMIN D [Concomitant]
  6. RESTASIS [Suspect]
     Indication: DRY EYE
     Dosage: 1 GTT, BID
     Dates: start: 20090101

REACTIONS (2)
  - PRODUCT TASTE ABNORMAL [None]
  - WEIGHT INCREASED [None]
